FAERS Safety Report 20162104 (Version 7)
Quarter: 2022Q3

REPORT INFORMATION
  Report Type: Report from Study
  Country: US (occurrence: US)
  Receive Date: 20211208
  Receipt Date: 20220921
  Transmission Date: 20221027
  Serious: Yes (Hospitalization, Other)
  Sender: FDA-Public Use
  Company Number: US-TAKEDA-US202029576

PATIENT
  Age: 64 Year
  Sex: Female

DRUGS (2)
  1. HUMAN IMMUNOGLOBULIN G [Suspect]
     Active Substance: HUMAN IMMUNOGLOBULIN G
     Indication: Primary immunodeficiency syndrome
     Dosage: 12 GRAM, 1/WEEK
     Route: 065
  2. COVID-19 VACCINE NOS [Suspect]
     Active Substance: COVID-19 VACCINE NOS
     Indication: COVID-19 immunisation
     Dosage: UNK
     Route: 065

REACTIONS (20)
  - Haemoglobin decreased [Not Recovered/Not Resolved]
  - Biopsy lung [Unknown]
  - Hepatic cirrhosis [Unknown]
  - Internal haemorrhage [Unknown]
  - Rheumatoid arthritis [Unknown]
  - Multiple allergies [Unknown]
  - Dysphonia [Unknown]
  - Splenomegaly [Unknown]
  - Pulmonary mass [Unknown]
  - COVID-19 immunisation [Unknown]
  - Seasonal allergy [Unknown]
  - Asthma [Unknown]
  - Feeling cold [Unknown]
  - Asthenia [Unknown]
  - Malaise [Unknown]
  - Fatigue [Unknown]
  - Pruritus [Unknown]
  - Lung opacity [Unknown]
  - Oxygen saturation decreased [Not Recovered/Not Resolved]
  - Pain [Unknown]

NARRATIVE: CASE EVENT DATE: 20211201
